FAERS Safety Report 25596890 (Version 4)
Quarter: 2025Q3

REPORT INFORMATION
  Report Type: Report from Study
  Country: JP (occurrence: JP)
  Receive Date: 20250723
  Receipt Date: 20250813
  Transmission Date: 20251020
  Serious: Yes (Life-Threatening)
  Sender: ELI LILLY AND COMPANY
  Company Number: JP-ELI_LILLY_AND_COMPANY-JP202506020690

PATIENT
  Age: 72 Year
  Sex: Male
  Weight: 57.4 kg

DRUGS (3)
  1. KISUNLA [Suspect]
     Active Substance: DONANEMAB-AZBT
     Indication: Dementia Alzheimer^s type
     Route: 041
     Dates: start: 20250221, end: 20250424
  2. KISUNLA [Suspect]
     Active Substance: DONANEMAB-AZBT
     Route: 041
     Dates: start: 20250522, end: 20250522
  3. GALANTAMINE HYDROBROMIDE [Concomitant]
     Active Substance: GALANTAMINE HYDROBROMIDE
     Indication: Dementia Alzheimer^s type

REACTIONS (2)
  - Blood pressure decreased [Recovered/Resolved]
  - Anaphylactic reaction [Recovered/Resolved]

NARRATIVE: CASE EVENT DATE: 20250522
